FAERS Safety Report 8427052-6 (Version None)
Quarter: 2012Q2

REPORT INFORMATION
  Report Type: 
  Country: None (occurrence: None)
  Receive Date: 20120611
  Receipt Date: 20120605
  Transmission Date: 20120825
  Serious: Yes (Hospitalization)
  Sender: FDA-Public Use
  Company Number: US-GILEAD-2012-0056247

PATIENT
  Sex: Female

DRUGS (1)
  1. LETAIRIS [Suspect]
     Indication: PRODUCT USED FOR UNKNOWN INDICATION
     Dosage: 5 MG, UNK
     Route: 048
     Dates: start: 20120510

REACTIONS (6)
  - FLUID RETENTION [None]
  - HYPOTENSION [None]
  - PAIN [None]
  - RENAL FAILURE [None]
  - ORGAN FAILURE [None]
  - CARDIAC DISORDER [None]
